FAERS Safety Report 6690605-X (Version None)
Quarter: 2010Q2

REPORT INFORMATION
  Report Type: 
  Country: None (occurrence: None)
  Receive Date: 20100421
  Receipt Date: 20100409
  Transmission Date: 20101027
  Serious: Yes (Other)
  Sender: FDA-Public Use
  Company Number: B0648301A

PATIENT
  Sex: Male

DRUGS (2)
  1. WELLBUTRIN SR [Suspect]
     Route: 048
     Dates: start: 20100216, end: 20100302
  2. CAMCOLIT [Concomitant]
     Dosage: 800MG PER DAY
     Route: 048
     Dates: start: 20100116

REACTIONS (2)
  - PARKINSONISM [None]
  - POLLAKIURIA [None]
